FAERS Safety Report 17266156 (Version 2)
Quarter: 2020Q1

REPORT INFORMATION
  Report Type: Spontaneous
  Country: US (occurrence: US)
  Receive Date: 20200114
  Receipt Date: 20200114
  Transmission Date: 20200409
  Serious: Yes (Other)
  Sender: FDA-Public Use
  Company Number: US-GLAXOSMITHKLINE-US2020005434

PATIENT
  Age: 51 Year
  Sex: Female

DRUGS (2)
  1. EX-LAX MAXIMUM STRENGTH STIMULANT LAXATIVE [Suspect]
     Active Substance: SENNOSIDES
     Indication: PRODUCT USED FOR UNKNOWN INDICATION
     Dosage: UNK,(TOOK 2 THE DAY BEFORE, OTHER DAY AND TODAY WAS 3RD DAY)
     Dates: start: 20200106, end: 20200108
  2. EXCEDRIN [Suspect]
     Active Substance: ACETAMINOPHEN\ASPIRIN\CAFFEINE
     Indication: PRODUCT USED FOR UNKNOWN INDICATION
     Dosage: UNK

REACTIONS (5)
  - Haematochezia [Unknown]
  - Bowel movement irregularity [Unknown]
  - Drug ineffective [Unknown]
  - Abdominal pain [Unknown]
  - Abdominal pain upper [Unknown]

NARRATIVE: CASE EVENT DATE: 20200109
